FAERS Safety Report 14600902 (Version 1)
Quarter: 2018Q1

REPORT INFORMATION
  Report Type: Spontaneous
  Country: US (occurrence: US)
  Receive Date: 20180305
  Receipt Date: 20180305
  Transmission Date: 20180509
  Serious: No
  Sender: FDA-Public Use
  Company Number: US-JNJFOC-20180217482

PATIENT
  Sex: Female

DRUGS (2)
  1. ZYRTEC ALLERGY [Suspect]
     Active Substance: CETIRIZINE HYDROCHLORIDE
     Route: 048
  2. ZYRTEC ALLERGY [Suspect]
     Active Substance: CETIRIZINE HYDROCHLORIDE
     Indication: HYPERSENSITIVITY
     Route: 048

REACTIONS (8)
  - Glossodynia [Unknown]
  - Pharyngeal hypoaesthesia [Unknown]
  - Swollen tongue [Recovering/Resolving]
  - Hypersensitivity [Unknown]
  - Dyspnoea [Unknown]
  - Eating disorder symptom [Unknown]
  - Oral discomfort [Unknown]
  - Hypoaesthesia oral [Unknown]
